FAERS Safety Report 21554970 (Version 1)
Quarter: 2022Q4

REPORT INFORMATION
  Report Type: Spontaneous
  Country: US (occurrence: US)
  Receive Date: 20221104
  Receipt Date: 20221104
  Transmission Date: 20230113
  Serious: Yes (Other)
  Sender: FDA-Public Use
  Company Number: US-AZURITY PHARMACEUTICALS, INC.-US-2022ARB002779

PATIENT
  Age: 71 Year
  Sex: Male

DRUGS (4)
  1. METHOTREXATE [Suspect]
     Active Substance: METHOTREXATE
     Indication: Nodal marginal zone B-cell lymphoma
     Dosage: BI-WEEKLY, TRIPLE THERAPY FOR ONE MONTH
     Route: 037
  2. METHOTREXATE [Suspect]
     Active Substance: METHOTREXATE
     Dosage: 3 G/M2, 6 CYCLES (HIGH DOSE)
     Route: 037
  3. CYTARABINE [Concomitant]
     Active Substance: CYTARABINE
     Indication: Nodal marginal zone B-cell lymphoma
     Dosage: BI-WEEKLY, TRIPLE THERAPY FOR ONE MONTH
     Route: 037
  4. RITUXIMAB [Concomitant]
     Active Substance: RITUXIMAB
     Indication: Metastases to meninges
     Dosage: 375 MG/M^2, 6 DOSES
     Route: 037

REACTIONS (1)
  - Renal failure [Unknown]
